FAERS Safety Report 9431401 (Version 1)
Quarter: 2013Q3

REPORT INFORMATION
  Report Type: Spontaneous
  Country: US (occurrence: US)
  Receive Date: 20130730
  Receipt Date: 20130730
  Transmission Date: 20140515
  Serious: Yes (Other)
  Sender: FDA-Public Use
  Company Number: US-009507513-1307USA015794

PATIENT
  Sex: Female

DRUGS (4)
  1. FOSAMAX [Suspect]
     Dosage: UNK
     Route: 048
     Dates: start: 2003, end: 201108
  2. ALENDRONATE SODIUM [Suspect]
     Dosage: UNK
     Dates: start: 2003, end: 201108
  3. BONIVA [Suspect]
     Dosage: UNK
     Dates: start: 2003, end: 201108
  4. IBANDRONATE SODIUM [Suspect]
     Dosage: UNK
     Dates: start: 2003, end: 201108

REACTIONS (1)
  - Femur fracture [Unknown]
